FAERS Safety Report 8718248 (Version 5)
Quarter: 2016Q1

REPORT INFORMATION
  Report Type: Spontaneous
  Country: US (occurrence: US)
  Receive Date: 20120810
  Receipt Date: 20160323
  Transmission Date: 20160526
  Serious: Yes (Hospitalization, Other)
  Sender: FDA-Public Use
  Company Number: US-ELI_LILLY_AND_COMPANY-US201208001043

PATIENT
  Sex: Female

DRUGS (6)
  1. HUMATROPE [Suspect]
     Active Substance: SOMATROPIN
     Dosage: 0.2 MG, QD
  2. BABY ASPIRIN [Concomitant]
     Active Substance: ASPIRIN
     Dosage: 2 DF, UNK
  3. FLUOXETINE HYDROCHLORIDE. [Concomitant]
     Active Substance: FLUOXETINE HYDROCHLORIDE
     Dosage: 20 MG, UNK
  4. HUMATROPE [Suspect]
     Active Substance: SOMATROPIN
     Indication: BLOOD GROWTH HORMONE
     Dosage: 0.2 MG, UNK
     Route: 065
     Dates: start: 200508
  5. HUMATROPE [Suspect]
     Active Substance: SOMATROPIN
     Dosage: UNK, QD
     Route: 065
  6. HUMATROPE [Suspect]
     Active Substance: SOMATROPIN
     Dosage: 0.2 MG, QD
     Route: 065

REACTIONS (31)
  - Tinnitus [Unknown]
  - Mental disorder [Unknown]
  - Anxiety [Recovered/Resolved]
  - Emotional disorder [Recovering/Resolving]
  - Thyroid disorder [Unknown]
  - Affective disorder [Recovered/Resolved]
  - Deafness unilateral [Not Recovered/Not Resolved]
  - Chills [Recovering/Resolving]
  - Hypoaesthesia [Unknown]
  - Pain in extremity [Recovered/Resolved]
  - Drug dose omission [Unknown]
  - Cerebrovascular accident [Unknown]
  - Atrial septal defect [Recovered/Resolved]
  - Anxiety [Unknown]
  - Dyspnoea [Unknown]
  - Emotional distress [Unknown]
  - Drug ineffective [Recovered/Resolved]
  - Emotional disorder [Recovered/Resolved]
  - Diverticulitis [Unknown]
  - Nervousness [Unknown]
  - Fear [Unknown]
  - Incorrect product storage [Unknown]
  - Incorrect product storage [Recovered/Resolved]
  - Panic disorder [Unknown]
  - Balance disorder [Not Recovered/Not Resolved]
  - Crying [Recovering/Resolving]
  - Speech disorder [Unknown]
  - Chest pain [Recovered/Resolved]
  - Insomnia [Recovering/Resolving]
  - Insomnia [Unknown]
  - Feeling abnormal [Unknown]

NARRATIVE: CASE EVENT DATE: 2007
